FAERS Safety Report 6064647 (Version 22)
Quarter: 2013Q3

REPORT INFORMATION
  Report Type: Spontaneous
  Country: US (occurrence: US)
  Receive Date: 20060614
  Receipt Date: 20130913
  Transmission Date: 20140515
  Serious: Yes (Death, Hospitalization, Other)
  Sender: FDA-Public Use
  Company Number: PHEH2006US07275

PATIENT
  Age: 67 Year
  Sex: Male
  Weight: 58.5 kg

DRUGS (18)
  1. ZOMETA [Suspect]
     Indication: METASTASES TO BONE
     Dosage: 4 MG, QW3
     Route: 042
     Dates: start: 200203, end: 200601
  2. AMOXICILLIN [Concomitant]
  3. MEVACOR [Concomitant]
  4. TOPROL XL [Concomitant]
     Dosage: 50 MG, QD
     Route: 048
  5. ZOCOR ^MERCK^ [Concomitant]
     Dosage: 80 MG, QD
     Route: 048
  6. ECOTRIN [Concomitant]
     Dosage: 325 MG, UNK
  7. LUPRON [Concomitant]
  8. PAXIL [Concomitant]
     Dosage: 20 MG, QD
     Route: 048
  9. ATENOLOL [Concomitant]
  10. ALPRAZOLAM [Concomitant]
  11. CASODEX [Concomitant]
  12. OXYCONTIN [Concomitant]
  13. ASPIRIN [Concomitant]
  14. LOVASTATIN [Concomitant]
  15. XANAX [Concomitant]
  16. TAXOTERE [Concomitant]
  17. NEULASTA [Concomitant]
  18. TEMAZEPAM [Concomitant]

REACTIONS (105)
  - Ascites [Unknown]
  - Respiratory distress [Unknown]
  - Cardiac disorder [Unknown]
  - Cataract [Unknown]
  - Suicidal ideation [Unknown]
  - Stomatitis [Unknown]
  - Intervertebral disc protrusion [Unknown]
  - Vertebral foraminal stenosis [Unknown]
  - Vision blurred [Unknown]
  - Intervertebral disc disorder [Unknown]
  - Myeloproliferative disorder [Unknown]
  - Renal osteodystrophy [Unknown]
  - Osteoarthropathy [Unknown]
  - Hepatic lesion [Unknown]
  - Hepatic calcification [Unknown]
  - Death [Fatal]
  - Hydronephrosis [Unknown]
  - Nausea [Unknown]
  - Renal colic [Unknown]
  - Inflammation [Recovering/Resolving]
  - Renal haemorrhage [Unknown]
  - Myalgia [Unknown]
  - Flank pain [Unknown]
  - Hypotension [Recovered/Resolved]
  - Chronic obstructive pulmonary disease [Unknown]
  - Dyspnoea [Unknown]
  - Cough [Unknown]
  - Lung hyperinflation [Unknown]
  - Osteonecrosis of jaw [Unknown]
  - Pain in jaw [Unknown]
  - Bone disorder [Unknown]
  - Anxiety [Unknown]
  - Pain [Recovering/Resolving]
  - Anhedonia [Unknown]
  - Osteoarthritis [Unknown]
  - Radiculopathy [Unknown]
  - Urinary tract infection [Unknown]
  - Haematuria [Unknown]
  - Splenic granuloma [Unknown]
  - Hepatic cyst [Unknown]
  - Renal cyst [Unknown]
  - Gait disturbance [Unknown]
  - Deafness neurosensory [Unknown]
  - Emphysema [Unknown]
  - Sepsis [Unknown]
  - Syncope [Unknown]
  - Hypertension [Unknown]
  - Gingivitis [Unknown]
  - Chronic sinusitis [Unknown]
  - Gingival disorder [Unknown]
  - Dental caries [Unknown]
  - Sensitivity of teeth [Unknown]
  - Oropharyngeal plaque [Unknown]
  - Pain in extremity [Unknown]
  - Musculoskeletal pain [Unknown]
  - Hypoaesthesia [Unknown]
  - Rotator cuff syndrome [Unknown]
  - Neck pain [Unknown]
  - Rash [Unknown]
  - Pruritus [Unknown]
  - Urticaria [Unknown]
  - Bereavement [Unknown]
  - Back pain [Unknown]
  - Chills [Unknown]
  - Night sweats [Unknown]
  - Tinnitus [Unknown]
  - Dysphagia [Unknown]
  - Aphasia [Unknown]
  - Nasal septum deviation [Unknown]
  - Loose tooth [Unknown]
  - Weight decreased [Unknown]
  - Hyperhidrosis [Recovering/Resolving]
  - Tachycardia [Unknown]
  - Dehydration [Unknown]
  - Proteinuria [Unknown]
  - Asthenia [Unknown]
  - Fatigue [Unknown]
  - Vomiting [Unknown]
  - Dizziness [Unknown]
  - Bone pain [Unknown]
  - Spinal cord compression [Unknown]
  - Abdominal pain upper [Unknown]
  - Diverticulitis [Unknown]
  - Large intestine polyp [Unknown]
  - Iron deficiency anaemia [Unknown]
  - Hernia [Unknown]
  - Reflux gastritis [Unknown]
  - Dyspepsia [Unknown]
  - Rectal haemorrhage [Unknown]
  - Multiple sclerosis [Unknown]
  - Goitre [Unknown]
  - Nasal congestion [Unknown]
  - Constipation [Unknown]
  - Arthralgia [Unknown]
  - Pulmonary mass [Unknown]
  - Hyperacusis [Unknown]
  - Road traffic accident [Unknown]
  - Metastases to bone [Unknown]
  - Malignant neoplasm progression [Unknown]
  - Oral discomfort [Unknown]
  - Varicose vein [Unknown]
  - Urinary incontinence [Unknown]
  - Tooth loss [Unknown]
  - Abscess jaw [Unknown]
  - Deep vein thrombosis [Unknown]
